FAERS Safety Report 14456462 (Version 9)
Quarter: 2020Q3

REPORT INFORMATION
  Report Type: Spontaneous
  Country: JP (occurrence: JP)
  Receive Date: 20180130
  Receipt Date: 20200813
  Transmission Date: 20201102
  Serious: Yes (Hospitalization, Disabling)
  Sender: FDA-Public Use
  Company Number: JP-AMGEN-JPNSP2018011258

PATIENT
  Age: 81 Year
  Sex: Female

DRUGS (1)
  1. PRALIA [Suspect]
     Active Substance: DENOSUMAB
     Indication: OSTEOPOROSIS
     Dosage: 60 MILLIGRAM, Q6MO
     Route: 058
     Dates: start: 20140625, end: 20161226

REACTIONS (2)
  - Osteonecrosis of external auditory canal [Recovered/Resolved with Sequelae]
  - Auditory meatus external erosion [Not Recovered/Not Resolved]

NARRATIVE: CASE EVENT DATE: 2015
